FAERS Safety Report 12499243 (Version 2)
Quarter: 2016Q3

REPORT INFORMATION
  Report Type: Spontaneous
  Country: US (occurrence: US)
  Receive Date: 20160627
  Receipt Date: 20160806
  Transmission Date: 20161109
  Serious: Yes (Life-Threatening, Hospitalization, Other)
  Sender: FDA-Public Use
  Company Number: US-INDOCO-000011

PATIENT
  Age: 2 Month
  Sex: Female
  Weight: 3.15 kg

DRUGS (6)
  1. OXYCODONE/OXYCODONE HYDROCHLORIDE/OXYCODONE PECTINATE/OXYCODONE TEREPHTHALATE [Concomitant]
     Route: 048
  2. PROPRANOLOL [Concomitant]
     Active Substance: PROPRANOLOL\PROPRANOLOL HYDROCHLORIDE
     Indication: INFANTILE HAEMANGIOMA
     Route: 048
  3. TIMOLOL. [Suspect]
     Active Substance: TIMOLOL
     Indication: LIP ULCERATION
     Dosage: 0.5 %, OPHTHALMIC SOLUTION
     Route: 061
  4. BRIMONIDINE [Suspect]
     Active Substance: BRIMONIDINE TARTRATE
     Indication: LIP ULCERATION
     Dosage: 0.2 % OPHTHALMIC DROPS
     Route: 061
  5. PREDNISOLONE. [Concomitant]
     Active Substance: PREDNISOLONE
     Indication: INFANTILE HAEMANGIOMA
     Route: 048
  6. LIDOCAINE/LIDOCAINE HYDROCHLORIDE [Concomitant]
     Indication: INFANTILE HAEMANGIOMA
     Dosage: 2 %
     Route: 061

REACTIONS (8)
  - Hypotonia [Recovered/Resolved]
  - Hypothermia [Recovered/Resolved]
  - Apnoea [Recovered/Resolved]
  - Off label use [Unknown]
  - Depressed level of consciousness [Recovered/Resolved]
  - Toxicity to various agents [Recovered/Resolved]
  - Respiratory depression [Recovered/Resolved]
  - Lethargy [Recovered/Resolved]
